FAERS Safety Report 6232253-1 (Version None)
Quarter: 2009Q2

REPORT INFORMATION
  Report Type: 
  Country: None (occurrence: None)
  Receive Date: 20090617
  Receipt Date: 20090604
  Transmission Date: 20091009
  Serious: Yes (Other)
  Sender: FDA-Public Use
  Company Number: JP-PFIZER INC-2009226344

PATIENT
  Age: 74 Year

DRUGS (5)
  1. ZOLOFT [Suspect]
     Indication: DEPRESSION
     Dosage: UNK
     Route: 048
     Dates: start: 20090401
  2. NITRAZEPAM [Suspect]
     Indication: INSOMNIA
     Dosage: UNK
     Dates: start: 20090401
  3. LOXONIN [Concomitant]
     Dosage: UNK
     Route: 048
     Dates: start: 20090401
  4. SELBEX [Concomitant]
     Dosage: UNK
     Route: 048
     Dates: start: 20090401
  5. MEILAX [Concomitant]
     Dosage: UNK
     Route: 048
     Dates: start: 20090401

REACTIONS (11)
  - ABNORMAL BEHAVIOUR [None]
  - AMNESIA [None]
  - ANOREXIA [None]
  - COGNITIVE DISORDER [None]
  - DELIRIUM [None]
  - DELUSION [None]
  - DEPRESSION [None]
  - DISORIENTATION [None]
  - GAIT DISTURBANCE [None]
  - INSOMNIA [None]
  - PSEUDODEMENTIA [None]
